FAERS Safety Report 13504632 (Version 1)
Quarter: 2017Q2

REPORT INFORMATION
  Report Type: Spontaneous
  Country: US (occurrence: US)
  Receive Date: 20170502
  Receipt Date: 20170502
  Transmission Date: 20170830
  Serious: No
  Sender: FDA-Public Use
  Company Number: US-IMPAX LABORATORIES, INC-2017-IPXL-00926

PATIENT
  Age: 56 Year
  Sex: Female
  Weight: 77 kg

DRUGS (4)
  1. RYTARY [Suspect]
     Active Substance: CARBIDOPA\LEVODOPA
     Dosage: 23.75/95 MG, ONE CAPSULE, 4/DAY
     Route: 048
     Dates: start: 2017
  2. RASAGILINE. [Concomitant]
     Active Substance: RASAGILINE
     Indication: PARKINSON^S DISEASE
     Dosage: 1 MG, EVERY NIGHT
     Route: 065
     Dates: start: 2017
  3. RYTARY [Suspect]
     Active Substance: CARBIDOPA\LEVODOPA
     Dosage: 295
     Route: 048
     Dates: start: 2017
  4. RYTARY [Suspect]
     Active Substance: CARBIDOPA\LEVODOPA
     Indication: PARKINSON^S DISEASE
     Dosage: LOW DOSE, UNK
     Route: 048
     Dates: start: 2017

REACTIONS (1)
  - Pre-existing condition improved [Unknown]
